FAERS Safety Report 23251277 (Version 5)
Quarter: 2024Q1

REPORT INFORMATION
  Report Type: Spontaneous
  Country: US (occurrence: US)
  Receive Date: 20231201
  Receipt Date: 20240305
  Transmission Date: 20240409
  Serious: No
  Sender: FDA-Public Use
  Company Number: US-OPELLA-2023OHG016366

PATIENT
  Age: 77 Year
  Sex: Male

DRUGS (1)
  1. ALLEGRA-D 24 HOUR [Suspect]
     Active Substance: FEXOFENADINE HYDROCHLORIDE\PSEUDOEPHEDRINE HYDROCHLORIDE
     Indication: Rhinitis
     Route: 065
     Dates: start: 202311, end: 202311

REACTIONS (1)
  - Product residue present [Recovered/Resolved]

NARRATIVE: CASE EVENT DATE: 20231101
